FAERS Safety Report 9798024 (Version 1)
Quarter: 2014Q1

REPORT INFORMATION
  Report Type: Spontaneous
  Country: FR (occurrence: None)
  Receive Date: 20140102
  Receipt Date: 20140102
  Transmission Date: 20141002
  Serious: Yes (Hospitalization)
  Sender: FDA-Public Use
  Company Number: 1969423

PATIENT
  Age: 50 Year
  Sex: Female

DRUGS (7)
  1. CARBOPLATIN [Suspect]
     Indication: NEOADJUVANT THERAPY
     Dosage: NOT OTHERWISE SPECIFIED
     Route: 042
     Dates: start: 20110520, end: 20110520
  2. TAXOTERE [Suspect]
     Indication: NEOADJUVANT THERAPY
     Route: 042
     Dates: start: 20110520, end: 20110520
  3. HERCEPTIN [Suspect]
     Indication: NEOADJUVANT THERAPY
     Route: 042
     Dates: start: 20110519, end: 20110519
  4. ONDANSETRON [Suspect]
     Indication: PRODUCT USED FOR UNKNOWN INDICATION
     Dosage: NOT OTHER WISE SPECIFIED
     Route: 042
     Dates: start: 20110519
  5. PREDNISOLONE [Suspect]
     Indication: PRODUCT USED FOR UNKNOWN INDICATION
     Route: 048
     Dates: start: 20110518, end: 20110520
  6. LODOZ [Concomitant]
  7. STRESAM [Concomitant]

REACTIONS (1)
  - Colitis ischaemic [None]
